FAERS Safety Report 25888118 (Version 1)
Quarter: 2025Q4

REPORT INFORMATION
  Report Type: Spontaneous
  Country: US (occurrence: US)
  Receive Date: 20251007
  Receipt Date: 20251007
  Transmission Date: 20260117
  Serious: Yes (Other)
  Sender: STRIDES
  Company Number: None

PATIENT

DRUGS (13)
  1. PREDNISOLONE [Suspect]
     Active Substance: PREDNISOLONE
     Indication: Dermatomyositis
     Dosage: UNK, QD (0.05-1 MG/KG DAILY)
     Route: 048
  2. PREDNISOLONE [Suspect]
     Active Substance: PREDNISOLONE
     Dosage: 0.12 MG/KG, QD
     Route: 048
  3. PREDNISOLONE [Suspect]
     Active Substance: PREDNISOLONE
     Dosage: 0.25 MG/KG, QD
     Route: 048
  4. PREDNISOLONE [Suspect]
     Active Substance: PREDNISOLONE
     Dosage: 0.12 MG/KG, QD
     Route: 048
  5. METHOTREXATE [Suspect]
     Active Substance: METHOTREXATE
     Indication: Dermatomyositis
     Dosage: UNK
     Route: 065
  6. MYCOPHENOLATE MOFETIL [Suspect]
     Active Substance: MYCOPHENOLATE MOFETIL
     Indication: Dermatomyositis
     Dosage: UNK
     Route: 065
  7. METHYLPREDNISOLONE [Suspect]
     Active Substance: METHYLPREDNISOLONE
     Indication: Dermatomyositis
     Dosage: UNK, INTERMITTENT PULSE
     Route: 042
  8. METHYLPREDNISOLONE [Suspect]
     Active Substance: METHYLPREDNISOLONE
     Dosage: UNK
     Route: 042
  9. HYDROXYCHLOROQUINE [Suspect]
     Active Substance: HYDROXYCHLOROQUINE
     Indication: Dermatomyositis
     Dosage: UNK
     Route: 065
  10. HUMAN IMMUNOGLOBULIN G [Suspect]
     Active Substance: HUMAN IMMUNOGLOBULIN G
     Indication: Dermatomyositis
     Dosage: UNK
     Route: 042
  11. HUMAN IMMUNOGLOBULIN G [Suspect]
     Active Substance: HUMAN IMMUNOGLOBULIN G
     Dosage: UNK
     Route: 042
  12. ABATACEPT [Concomitant]
     Active Substance: ABATACEPT
     Indication: Dermatomyositis
     Dosage: UNK
     Route: 065
  13. RITUXIMAB [Concomitant]
     Active Substance: RITUXIMAB
     Indication: Dermatomyositis
     Dosage: UNK
     Route: 065

REACTIONS (4)
  - Cataract [Unknown]
  - Drug ineffective [Unknown]
  - Myopathy [Unknown]
  - Off label use [Unknown]
